FAERS Safety Report 8288302-2 (Version None)
Quarter: 2012Q2

REPORT INFORMATION
  Report Type: 
  Country: None (occurrence: None)
  Receive Date: 20120416
  Receipt Date: 20120405
  Transmission Date: 20120825
  Serious: Yes (Other)
  Sender: FDA-Public Use
  Company Number: US-ASTRAZENECA-2011SE44451

PATIENT
  Age: 62 Year
  Sex: Female

DRUGS (3)
  1. NEXIUM [Suspect]
     Indication: EROSIVE OESOPHAGITIS
     Route: 048
     Dates: start: 20040101, end: 20110701
  2. SIMVASTATIN [Concomitant]
     Indication: BLOOD CHOLESTEROL INCREASED
     Route: 048
  3. NEXIUM [Suspect]
     Dosage: DAILY
     Route: 048

REACTIONS (7)
  - INTENTIONAL DRUG MISUSE [None]
  - TYPE 2 DIABETES MELLITUS [None]
  - DYSPEPSIA [None]
  - DRUG DEPENDENCE [None]
  - INTERVERTEBRAL DISC DEGENERATION [None]
  - ARTHRITIS [None]
  - OSTEOPENIA [None]
